FAERS Safety Report 10178396 (Version 2)
Quarter: 2014Q2

REPORT INFORMATION
  Report Type: Spontaneous
  Country: JP (occurrence: JP)
  Receive Date: 20140519
  Receipt Date: 20140527
  Transmission Date: 20141212
  Serious: Yes (Death)
  Sender: FDA-Public Use
  Company Number: JP-JNJFOC-20140510494

PATIENT
  Age: 42 Year
  Sex: Male
  Weight: 60 kg

DRUGS (4)
  1. REMICADE [Suspect]
     Indication: PSORIASIS
     Route: 042
     Dates: start: 20140417
  2. METHOTREXATE [Suspect]
     Indication: PSORIASIS
     Route: 048
     Dates: start: 20140428, end: 20140428
  3. METHOTREXATE [Suspect]
     Indication: PSORIASIS
     Route: 048
     Dates: start: 20140414, end: 20140428
  4. FOLIC ACID [Concomitant]
     Route: 048
     Dates: start: 20140416, end: 20140430

REACTIONS (5)
  - Myocardial infarction [Fatal]
  - Cardiac tamponade [Fatal]
  - Malaise [Unknown]
  - Viral upper respiratory tract infection [Unknown]
  - Hepatic enzyme increased [Unknown]
